FAERS Safety Report 19055327 (Version 1)
Quarter: 2021Q1

REPORT INFORMATION
  Report Type: Spontaneous
  Country: US (occurrence: US)
  Receive Date: 20210324
  Receipt Date: 20210324
  Transmission Date: 20210420
  Serious: Yes (Other)
  Sender: FDA-Public Use
  Company Number: None

PATIENT
  Age: 55 Year
  Sex: Female
  Weight: 69.9 kg

DRUGS (1)
  1. DALFAMPRIDINE. [Suspect]
     Active Substance: DALFAMPRIDINE
     Indication: MULTIPLE SCLEROSIS
     Dates: start: 20181116, end: 20190325

REACTIONS (3)
  - Headache [None]
  - Tinnitus [None]
  - Drug ineffective [None]

NARRATIVE: CASE EVENT DATE: 20190325
